FAERS Safety Report 7259085 (Version 2)
Quarter: 2013Q4

REPORT INFORMATION
  Report Type: Spontaneous
  Country: US (occurrence: None)
  Receive Date: 20100119
  Receipt Date: 20131108
  Transmission Date: 20140711
  Serious: Yes (Other)
  Sender: FDA-Public Use
  Company Number: 2010S1000040

PATIENT
  Age: 75 Year
  Sex: Female
  Weight: 78.47 kg

DRUGS (10)
  1. SODIUM PHOSPHATE [Suspect]
     Indication: PRODUCT USED FOR UNKNOWN INDICATION
     Dosage: ; PO
     Route: 048
     Dates: start: 20070713
  2. LISINOPRIL (LISINOPRIL) [Concomitant]
  3. HYDROCHLOROTHIAZIDE (HYDROCHLOROTHIAZIDE) [Concomitant]
  4. RESTORIL (TEMAZEPAM) [Concomitant]
  5. HYDROCODONE WITH TYLENOL (PARACETAMOL, HYDROCODONE BITARRATE) [Concomitant]
  6. LOVASTATIN (LOVASTATIN) [Concomitant]
  7. SOTALOL (SOTALOL) [Concomitant]
  8. VITAMIN C (ASCORBIC ACID) [Concomitant]
  9. FISH OIL (FISH OIL) [Concomitant]
  10. EXCEDRIN (ACETYLSALICYLIC ACID, CAFFEINE, SALICYLAMIDE) [Concomitant]

REACTIONS (1)
  - Renal disorder [None]
